FAERS Safety Report 4612302-4 (Version None)
Quarter: 2005Q1

REPORT INFORMATION
  Report Type: 
  Country: None (occurrence: None)
  Receive Date: 20050316
  Receipt Date: 20050302
  Transmission Date: 20050727
  Serious: Yes (Other)
  Sender: FDA-Public Use
  Company Number: SUS1-2005-00166

PATIENT
  Age: 60 Year
  Sex: Male

DRUGS (8)
  1. AGRYLIN [Suspect]
     Indication: ESSENTIAL THROMBOCYTHAEMIA
     Dosage: SEE IMAGE
  2. AZATHIOPRINE [Concomitant]
  3. MESALAMINE [Concomitant]
  4. SULFASALAZINE [Concomitant]
  5. VITAMIN B12 [Concomitant]
  6. MULTIVITAMINS (ASCORBIC ACID/ERGOCALCIFEROL/FOLIC ACID/NICOTINAMIDE/PA [Concomitant]
  7. ASPIRIN [Concomitant]
  8. IRON PREPARATIONS [Concomitant]

REACTIONS (6)
  - BLOOD CREATINE INCREASED [None]
  - BLOOD POTASSIUM INCREASED [None]
  - RENAL AMYLOIDOSIS [None]
  - RENAL ARTERIOSCLEROSIS [None]
  - RENAL INTERSTITIAL FIBROSIS [None]
  - RENAL TUBULAR DISORDER [None]
